FAERS Safety Report 23736693 (Version 1)
Quarter: 2024Q2

REPORT INFORMATION
  Report Type: Spontaneous
  Country: US (occurrence: US)
  Receive Date: 20240412
  Receipt Date: 20240412
  Transmission Date: 20240716
  Serious: No
  Sender: FDA-Public Use
  Company Number: US-Blueprint Medicines Corporation-3065

PATIENT
  Sex: Female

DRUGS (1)
  1. AYVAKIT [Suspect]
     Active Substance: AVAPRITINIB
     Indication: Systemic mastocytosis
     Route: 065
     Dates: start: 20240309

REACTIONS (9)
  - Pulmonary pain [Unknown]
  - Ear infection [Unknown]
  - Dyspnoea [Unknown]
  - Urinary retention [Unknown]
  - Fluid retention [Unknown]
  - Periorbital swelling [Unknown]
  - Swelling face [Unknown]
  - Weight increased [Unknown]
  - Intentional dose omission [Unknown]
